FAERS Safety Report 10135916 (Version 2)
Quarter: 2014Q2

REPORT INFORMATION
  Report Type: Spontaneous
  Country: US (occurrence: US)
  Receive Date: 20140429
  Receipt Date: 20140502
  Transmission Date: 20141212
  Serious: Yes (Hospitalization)
  Sender: FDA-Public Use
  Company Number: US-ROCHE-1391655

PATIENT
  Age: 66 Year
  Sex: Female

DRUGS (11)
  1. XOLAIR [Suspect]
     Indication: ASTHMA
     Route: 058
  2. QVAR [Concomitant]
     Route: 065
  3. AVALOX [Concomitant]
     Route: 065
  4. DULERA [Concomitant]
     Dosage: 2 PUFFS
     Route: 065
  5. LEVOCETIRIZINE [Concomitant]
     Route: 065
  6. FLONASE [Concomitant]
     Dosage: AS DIRECTED
     Route: 065
  7. HYDRALAZINE [Concomitant]
     Dosage: AS NEEDED
     Route: 065
  8. LEVALBUTEROL [Concomitant]
     Dosage: PUFF
     Route: 065
  9. XOPENEX [Concomitant]
     Dosage: PUFFS
     Route: 065
  10. VENTOLIN [Concomitant]
  11. PREDNISONE [Concomitant]

REACTIONS (1)
  - Asthma [Recovered/Resolved]
